FAERS Safety Report 17091870 (Version 3)
Quarter: 2019Q4

REPORT INFORMATION
  Report Type: Spontaneous
  Country: DE (occurrence: DE)
  Receive Date: 20191129
  Receipt Date: 20191227
  Transmission Date: 20200122
  Serious: Yes (Hospitalization)
  Sender: FDA-Public Use
  Company Number: DE-B.I. PHARMACEUTICALS,INC./RIDGEFIELD-2019-BI-116198

PATIENT
  Age: 60 Year
  Sex: Male
  Weight: 105 kg

DRUGS (4)
  1. JARDIANCE [Suspect]
     Active Substance: EMPAGLIFLOZIN
     Indication: TYPE 2 DIABETES MELLITUS
     Route: 048
     Dates: start: 20180801, end: 20181127
  2. TOUJEO [Suspect]
     Active Substance: INSULIN GLARGINE
     Route: 058
     Dates: start: 20180821
  3. TOUJEO [Suspect]
     Active Substance: INSULIN GLARGINE
     Indication: TYPE 2 DIABETES MELLITUS
     Dosage: 80 IU INSULIN
     Route: 058
  4. METFORMIN [Concomitant]
     Active Substance: METFORMIN HYDROCHLORIDE
     Indication: TYPE 2 DIABETES MELLITUS
     Route: 048

REACTIONS (10)
  - Schizophrenia [Recovered/Resolved]
  - Depression [Recovered/Resolved]
  - Retrograde amnesia [Recovered/Resolved]
  - Visual impairment [Recovered/Resolved]
  - Personality disorder [Recovered/Resolved]
  - Dizziness [Recovered/Resolved]
  - Paranoia [Recovered/Resolved]
  - Suicidal ideation [Recovered/Resolved]
  - Accidental overdose [Unknown]
  - Aggression [Recovered/Resolved]

NARRATIVE: CASE EVENT DATE: 201808
